FAERS Safety Report 6491676-6 (Version None)
Quarter: 2009Q4

REPORT INFORMATION
  Report Type: 
  Country: None (occurrence: None)
  Receive Date: 20091211
  Receipt Date: 20091201
  Transmission Date: 20100525
  Serious: Yes (Death)
  Sender: FDA-Public Use
  Company Number: JP-AMGEN-US379408

PATIENT
  Sex: Female
  Weight: 55 kg

DRUGS (12)
  1. ENBREL [Suspect]
     Indication: RHEUMATOID ARTHRITIS
     Route: 058
     Dates: start: 20080529, end: 20090121
  2. ATELEC [Concomitant]
     Dosage: UNSPECIFIED
     Route: 048
  3. BLOPRESS [Concomitant]
     Dosage: UNSPECIFIED
     Route: 048
  4. ACINON [Concomitant]
     Dosage: UNSPECIFIED
     Route: 048
  5. HUMULIN R [Concomitant]
     Dosage: UNSPECIFIED
     Route: 042
  6. LAC B [Concomitant]
     Dosage: UNSPECIFIED
     Route: 048
  7. ALDOMET [Concomitant]
     Dosage: UNSPECIFIED
     Route: 048
  8. BASEN [Concomitant]
     Dosage: UNSPECIFIED
     Route: 048
  9. ALLOPURINOL [Concomitant]
     Dosage: UNSPECIFIED
     Route: 048
  10. ANPLAG [Concomitant]
     Dosage: UNSPECIFIED
     Route: 048
  11. PREDNISOLONE [Concomitant]
     Route: 048
     Dates: end: 20090122
  12. ALFAROL [Concomitant]
     Dosage: UNSPECIFIED
     Route: 048

REACTIONS (1)
  - METABOLIC ACIDOSIS [None]
